FAERS Safety Report 5526786-0 (Version None)
Quarter: 2007Q4

REPORT INFORMATION
  Report Type: 
  Country: None (occurrence: None)
  Receive Date: 20071127
  Receipt Date: 20071115
  Transmission Date: 20080405
  Serious: Yes (Hospitalization)
  Sender: FDA-Public Use
  Company Number: CA-ROCHE-427175

PATIENT
  Age: 64 Year
  Sex: Male
  Weight: 70.8 kg

DRUGS (4)
  1. CAPECITABINE [Suspect]
     Indication: COLON CANCER
     Dosage: RECEIVED 1950 MG, TWICE DAILY, ON DAY 1 THROUGH UNTIL DAY 14 EVERY 3 WEEKS.
     Route: 048
     Dates: start: 20040218
  2. CELECOXIB [Suspect]
     Indication: COLON CANCER
     Route: 048
     Dates: start: 20040218
  3. IRINOTECAN HCL [Suspect]
     Indication: COLON CANCER
     Dosage: GIVEN ON DAY 1 AND 8 EVERY 3 WEEKS
     Route: 042
     Dates: start: 20040218
  4. BEVACIZUMAB [Suspect]
     Route: 065
     Dates: start: 20040423

REACTIONS (5)
  - ABDOMINAL DISCOMFORT [None]
  - DIARRHOEA [None]
  - INTESTINAL OBSTRUCTION [None]
  - NAUSEA [None]
  - VOMITING [None]
